FAERS Safety Report 5314800-7 (Version None)
Quarter: 2007Q2

REPORT INFORMATION
  Report Type: 
  Country: None (occurrence: None)
  Receive Date: 20070502
  Receipt Date: 20070423
  Transmission Date: 20071010
  Serious: Yes (Other)
  Sender: FDA-Public Use
  Company Number: GB-GLAXOSMITHKLINE-B0468574A

PATIENT
  Age: 53 Year
  Sex: Female
  Weight: 78.2 kg

DRUGS (6)
  1. ROSIGLITAZONE [Suspect]
     Indication: DRUG USE FOR UNKNOWN INDICATION
     Dosage: 4MG UNKNOWN
     Route: 048
     Dates: start: 20061005, end: 20070405
  2. ATORVASTATIN CALCIUM [Concomitant]
     Dosage: 80MG UNKNOWN
     Route: 048
  3. GLICLAZIDE [Concomitant]
     Dosage: 320MG UNKNOWN
     Route: 048
  4. METFORMIN HCL [Concomitant]
     Dosage: 2G UNKNOWN
     Route: 048
  5. RAMIPRIL [Concomitant]
     Dosage: 15MG UNKNOWN
     Route: 048
  6. INSULIN [Concomitant]
     Route: 065

REACTIONS (1)
  - FOOT FRACTURE [None]
